FAERS Safety Report 7476606-2 (Version None)
Quarter: 2011Q2

REPORT INFORMATION
  Report Type: 
  Country: None (occurrence: None)
  Receive Date: 20110512
  Receipt Date: 20110506
  Transmission Date: 20111010
  Serious: Yes (Hospitalization)
  Sender: FDA-Public Use
  Company Number: US-GENENTECH-318366

PATIENT
  Sex: Female

DRUGS (8)
  1. PREDNISONE [Suspect]
     Indication: B-CELL LYMPHOMA
     Dosage: UNK
     Dates: start: 20110118, end: 20110301
  2. DOXORUBICIN HYDROCHLORIDE [Suspect]
     Indication: B-CELL LYMPHOMA
     Dosage: UNK
     Dates: start: 20110118, end: 20110301
  3. VINCRISTINE [Suspect]
     Indication: B-CELL LYMPHOMA
     Dosage: UNK
     Dates: start: 20110118, end: 20110301
  4. ETOPOSIDE [Suspect]
     Indication: B-CELL LYMPHOMA
     Dosage: UNK
     Dates: end: 20110427
  5. CARBOPLATIN [Suspect]
     Indication: B-CELL LYMPHOMA
     Dosage: UNK
     Dates: end: 20110427
  6. CYCLOPHOSPHAMIDE [Suspect]
     Indication: B-CELL LYMPHOMA
     Dosage: UNK
     Dates: start: 20110118, end: 20110301
  7. RITUXAN [Suspect]
     Indication: B-CELL LYMPHOMA
     Dosage: UNK
     Dates: start: 20110118
  8. IFOSFAMIDE [Suspect]
     Indication: B-CELL LYMPHOMA
     Dosage: UNK
     Dates: end: 20110427

REACTIONS (1)
  - SYNCOPE [None]
